FAERS Safety Report 23406794 (Version 1)
Quarter: 2024Q1

REPORT INFORMATION
  Report Type: Spontaneous
  Country: US (occurrence: None)
  Receive Date: 20240115
  Receipt Date: 20240115
  Transmission Date: 20240410
  Serious: Yes (unspecified)
  Sender: FDA-Public Use
  Company Number: None

PATIENT
  Age: 72 Year
  Sex: Male

DRUGS (1)
  1. TOLVAPTAN [Suspect]
     Active Substance: TOLVAPTAN
     Indication: Generalised oedema
     Dosage: FREQUENCY : DAILY;?
     Dates: start: 20231103, end: 20231212

REACTIONS (10)
  - Oedema peripheral [None]
  - Oedema peripheral [None]
  - Thirst [None]
  - Cognitive disorder [None]
  - Dysarthria [None]
  - Suicidal ideation [None]
  - Therapy cessation [None]
  - Mobility decreased [None]
  - Therapeutic product effect incomplete [None]
  - Oedema [None]
